FAERS Safety Report 9190457 (Version 1)
Quarter: 2013Q1

REPORT INFORMATION
  Report Type: Spontaneous
  Country: US (occurrence: None)
  Receive Date: 20120703
  Receipt Date: 20120703
  Transmission Date: 20140127
  Serious: Yes (Other)
  Sender: FDA-Public Use
  Company Number: PHEH2012US008775

PATIENT
  Age: 55 Year
  Sex: Male

DRUGS (3)
  1. GILENYA [Suspect]
     Indication: MULTIPLE SCLEROSIS
     Route: 048
     Dates: start: 20120411, end: 20120417
  2. TEGRETOL (CARBAMAZEPINE) EXTENDED RELEASE TABLET [Concomitant]
  3. VICODIN (HYDROCODONE BITARTRATE, PARACETAMOL) [Concomitant]

REACTIONS (5)
  - Neutropenia [None]
  - White blood cell count decreased [None]
  - Lymphocyte count decreased [None]
  - CD8 lymphocytes decreased [None]
  - CD4/CD8 ratio decreased [None]
